FAERS Safety Report 24457855 (Version 1)
Quarter: 2024Q4

REPORT INFORMATION
  Report Type: Report from Study
  Country: US (occurrence: US)
  Receive Date: 20241018
  Receipt Date: 20241018
  Transmission Date: 20250115
  Serious: No
  Sender: ROCHE
  Company Number: US-ROCHE-3423284

PATIENT
  Age: 61 Year
  Sex: Female

DRUGS (4)
  1. CATHFLO ACTIVASE [Suspect]
     Active Substance: ALTEPLASE
     Indication: Embolism venous
     Route: 065
     Dates: start: 20230715
  2. CATHFLO ACTIVASE [Suspect]
     Active Substance: ALTEPLASE
     Route: 065
     Dates: start: 20230716
  3. CATHFLO ACTIVASE [Suspect]
     Active Substance: ALTEPLASE
     Route: 065
     Dates: start: 20230717
  4. CATHFLO ACTIVASE [Suspect]
     Active Substance: ALTEPLASE
     Route: 065
     Dates: start: 20230722

REACTIONS (2)
  - Off label use [Unknown]
  - No adverse event [Unknown]
